FAERS Safety Report 13286813 (Version 1)
Quarter: 2017Q1

REPORT INFORMATION
  Report Type: Report from Study
  Country: DE (occurrence: DE)
  Receive Date: 20170301
  Receipt Date: 20170301
  Transmission Date: 20170428
  Serious: Yes (Hospitalization)
  Sender: FDA-Public Use
  Company Number: DE-UCBSA-2017007757

PATIENT
  Sex: Male

DRUGS (1)
  1. CERTOLIZUMAB PEGOL RA [Suspect]
     Active Substance: CERTOLIZUMAB PEGOL
     Indication: RHEUMATOID ARTHRITIS
     Dosage: 200 MG, UNK
     Route: 058
     Dates: end: 20161104

REACTIONS (1)
  - Subcutaneous emphysema [Recovered/Resolved]

NARRATIVE: CASE EVENT DATE: 20161223
